FAERS Safety Report 13373044 (Version 1)
Quarter: 2017Q1

REPORT INFORMATION
  Report Type: Spontaneous
  Country: US (occurrence: US)
  Receive Date: 20170325
  Receipt Date: 20170325
  Transmission Date: 20170429
  Serious: Yes (Life-Threatening, Hospitalization)
  Sender: FDA-Public Use
  Company Number: None

PATIENT
  Age: 69 Year
  Sex: Female
  Weight: 209 kg

DRUGS (14)
  1. BUPROPION SR [Concomitant]
     Active Substance: BUPROPION HYDROCHLORIDE
  2. ATORVASTATIN [Concomitant]
     Active Substance: ATORVASTATIN
  3. MULTIVITAMIN [Concomitant]
     Active Substance: VITAMINS
  4. MICONAZOLE POWDER [Concomitant]
     Active Substance: MICONAZOLE
  5. ASPIRIN 81 [Concomitant]
     Active Substance: ASPIRIN
  6. DILTIAZEM. [Concomitant]
     Active Substance: DILTIAZEM
  7. IBUPROFEN. [Concomitant]
     Active Substance: IBUPROFEN
  8. METFORMIN [Concomitant]
     Active Substance: METFORMIN HYDROCHLORIDE
  9. PIOGLITAZONE. [Concomitant]
     Active Substance: PIOGLITAZONE
  10. LISINOPRIL. [Suspect]
     Active Substance: LISINOPRIL
     Indication: HYPERTENSION
     Route: 048
  11. ASCORBIC ACID. [Concomitant]
     Active Substance: ASCORBIC ACID
  12. HYDROCHLOROTHIAZIDE. [Concomitant]
     Active Substance: HYDROCHLOROTHIAZIDE
  13. INSULIN R [Concomitant]
  14. SERTRALINE [Concomitant]
     Active Substance: SERTRALINE HYDROCHLORIDE

REACTIONS (4)
  - Swollen tongue [None]
  - Hyperkalaemia [None]
  - Dyspnoea [None]
  - Hypoxia [None]

NARRATIVE: CASE EVENT DATE: 20161130
